FAERS Safety Report 16758012 (Version 2)
Quarter: 2020Q1

REPORT INFORMATION
  Report Type: Spontaneous
  Country: US (occurrence: US)
  Receive Date: 20190830
  Receipt Date: 20200123
  Transmission Date: 20200409
  Serious: Yes (Hospitalization, Disabling, Other)
  Sender: FDA-Public Use
  Company Number: US-ROCHE-2388795

PATIENT
  Age: 40 Year
  Sex: Female

DRUGS (7)
  1. BACLOFEN. [Concomitant]
     Active Substance: BACLOFEN
  2. CARBAMAZEPINE. [Concomitant]
     Active Substance: CARBAMAZEPINE
  3. CELLCEPT [Suspect]
     Active Substance: MYCOPHENOLATE MOFETIL\MYCOPHENOLATE MOFETIL HYDROCHLORIDE
     Indication: NEUROMYELITIS OPTICA SPECTRUM DISORDER
     Route: 065
  4. ELIQUIS [Concomitant]
     Active Substance: APIXABAN
  5. GABAPENTIN. [Concomitant]
     Active Substance: GABAPENTIN
  6. RITUXAN [Suspect]
     Active Substance: RITUXIMAB
     Indication: NEUROMYELITIS OPTICA SPECTRUM DISORDER
  7. RITUXAN [Suspect]
     Active Substance: RITUXIMAB
     Indication: MULTIPLE SCLEROSIS
     Route: 042

REACTIONS (10)
  - Bladder dysfunction [Unknown]
  - Neuralgia [Unknown]
  - Intentional product use issue [Unknown]
  - Walking disability [Unknown]
  - Pulmonary embolism [Unknown]
  - Off label use [Unknown]
  - Gastrointestinal haemorrhage [Unknown]
  - Deep vein thrombosis [Unknown]
  - Muscle spasticity [Unknown]
  - Anti-aquaporin-4 antibody positive [Unknown]
